FAERS Safety Report 6097377-0 (Version None)
Quarter: 2009Q1

REPORT INFORMATION
  Report Type: 
  Country: None (occurrence: None)
  Receive Date: 20090227
  Receipt Date: 20080204
  Transmission Date: 20090719
  Serious: No
  Sender: FDA-Public Use
  Company Number: A0707165A

PATIENT
  Age: 35 Year
  Sex: Female

DRUGS (3)
  1. IMITREX [Suspect]
     Indication: MIGRAINE
     Dosage: 6MG AS REQUIRED
     Route: 058
     Dates: start: 20080131
  2. TOPAMAX [Concomitant]
  3. CYMBALTA [Concomitant]

REACTIONS (5)
  - BLOOD PRESSURE INCREASED [None]
  - FATIGUE [None]
  - FEELING DRUNK [None]
  - HYPERACUSIS [None]
  - TINNITUS [None]
